FAERS Safety Report 7745650-X (Version None)
Quarter: 2011Q3

REPORT INFORMATION
  Report Type: 
  Country: None (occurrence: None)
  Receive Date: 20110913
  Receipt Date: 20110601
  Transmission Date: 20111222
  Serious: No
  Sender: FDA-Public Use
  Company Number: US-BAYER-2011-048026

PATIENT
  Sex: Female

DRUGS (4)
  1. AZULFIDINE [Concomitant]
     Dosage: DAILY DOSE 500 MG
  2. CIPROFLOXACIN [Concomitant]
     Dosage: DAILY DOSE 500 MG
  3. NEXAVAR [Suspect]
     Indication: MALIGNANT MELANOMA
     Dosage: 400 MG, HS
     Route: 048
     Dates: start: 20110330, end: 20110520
  4. HYDROXYCHLOROQUINE [Concomitant]
     Dosage: DAILY DOSE 200 MG

REACTIONS (5)
  - FATIGUE [None]
  - DYSPNOEA [None]
  - PLATELET COUNT DECREASED [None]
  - DRUG INEFFECTIVE [None]
  - HAEMOGLOBIN DECREASED [None]
